FAERS Safety Report 20303751 (Version 1)
Quarter: 2022Q1

REPORT INFORMATION
  Report Type: Report from Study
  Country: CA (occurrence: CA)
  Receive Date: 20220106
  Receipt Date: 20220106
  Transmission Date: 20220423
  Serious: Yes (Other)
  Sender: FDA-Public Use
  Company Number: None

PATIENT
  Sex: Female

DRUGS (2)
  1. METHOTREXATE [Suspect]
     Active Substance: METHOTREXATE
     Indication: Product used for unknown indication
     Dosage: 1 EVERY 1 WEEKS
  2. ENBREL [Concomitant]
     Active Substance: ETANERCEPT
     Route: 065

REACTIONS (3)
  - Ankylosing spondylitis [Unknown]
  - Back pain [Unknown]
  - Psoriasis [Unknown]
